FAERS Safety Report 25861199 (Version 1)
Quarter: 2025Q3

REPORT INFORMATION
  Report Type: Spontaneous
  Country: EU (occurrence: EU)
  Receive Date: 20250929
  Receipt Date: 20250929
  Transmission Date: 20251021
  Serious: Yes (Other)
  Sender: ASCEND THERAPEUTICS US, LLC
  Company Number: EU-Ascend Therapeutics US, LLC-2185552

PATIENT
  Age: 60 Year
  Sex: Female

DRUGS (4)
  1. ESTROGEL [Suspect]
     Active Substance: ESTRADIOL
     Indication: Product used for unknown indication
     Dates: start: 2015, end: 2025
  2. ESTRADIOL [Suspect]
     Active Substance: ESTRADIOL
     Dates: start: 2015, end: 2025
  3. PROGESTERONE [Suspect]
     Active Substance: PROGESTERONE
     Dates: start: 2015, end: 2025
  4. ESTRADIOL [Suspect]
     Active Substance: ESTRADIOL
     Dates: start: 2025

REACTIONS (5)
  - Neoplasm [Recovered/Resolved]
  - Product prescribing error [Unknown]
  - Contraindicated product administered [Unknown]
  - Therapeutic product effect decreased [Unknown]
  - Weight increased [Unknown]

NARRATIVE: CASE EVENT DATE: 20250101
